FAERS Safety Report 18195240 (Version 3)
Quarter: 2020Q3

REPORT INFORMATION
  Report Type: Spontaneous
  Country: JP (occurrence: JP)
  Receive Date: 20200825
  Receipt Date: 20200928
  Transmission Date: 20201103
  Serious: Yes (Hospitalization)
  Sender: FDA-Public Use
  Company Number: JP-CELGENEUS-JPN-20200805197

PATIENT
  Age: 70 Year
  Sex: Male

DRUGS (83)
  1. ABRAXANE [Suspect]
     Active Substance: PACLITAXEL
     Dosage: 151 MILLIGRAM
     Route: 042
     Dates: start: 20190807, end: 20190807
  2. ABRAXANE [Suspect]
     Active Substance: PACLITAXEL
     Dosage: 148 MILLIGRAM
     Route: 042
     Dates: start: 20191002, end: 20191002
  3. ABRAXANE [Suspect]
     Active Substance: PACLITAXEL
     Dosage: 148 MILLIGRAM
     Route: 042
     Dates: start: 20191106, end: 20191106
  4. DURVALUMAB. [Suspect]
     Active Substance: DURVALUMAB
     Indication: NON-SMALL CELL LUNG CANCER STAGE IV
     Dosage: 1500 MILLIGRAM
     Route: 042
     Dates: start: 20190731, end: 20190731
  5. DURVALUMAB. [Suspect]
     Active Substance: DURVALUMAB
     Dosage: 1500 MILLIGRAM
     Route: 042
     Dates: start: 20191030, end: 20191030
  6. DURVALUMAB. [Suspect]
     Active Substance: DURVALUMAB
     Dosage: 1500 MILLIGRAM
     Route: 042
     Dates: start: 20191225, end: 20191225
  7. DURVALUMAB. [Suspect]
     Active Substance: DURVALUMAB
     Dosage: 1500 MILLIGRAM
     Route: 042
     Dates: start: 20200417, end: 20200417
  8. CARBOPLATIN. [Suspect]
     Active Substance: CARBOPLATIN
     Indication: NON-SMALL CELL LUNG CANCER STAGE IV
     Dosage: 520 MILLIGRAM
     Route: 042
     Dates: start: 20190731, end: 20190731
  9. BLINDED OLAPARIB [Suspect]
     Active Substance: OLAPARIB
     Indication: NON-SMALL CELL LUNG CANCER STAGE IV
     Dosage: 600 MILLIGRAM
     Route: 048
     Dates: start: 20191127, end: 20191224
  10. BLINDED OLAPARIB [Suspect]
     Active Substance: OLAPARIB
     Dosage: 600 MILLIGRAM
     Route: 048
     Dates: start: 20191225, end: 20200102
  11. OXINORM [Concomitant]
     Indication: CANCER PAIN
     Dosage: 2.5MG
     Route: 048
     Dates: start: 20200714, end: 20200805
  12. EVOXAC [Concomitant]
     Active Substance: CEVIMELINE HYDROCHLORIDE
     Dosage: 60 MILLIGRAM
     Route: 048
     Dates: start: 20200418, end: 20200707
  13. URSODEOXYCHOLIC ACID [Concomitant]
     Active Substance: URSODIOL
     Dosage: 100 MILLIGRAM
     Route: 048
     Dates: start: 20200725, end: 20200805
  14. RESTAMIN [Concomitant]
     Active Substance: DIPHENHYDRAMINE
     Dosage: 50 MILLIGRAM
     Route: 048
     Dates: start: 20200805, end: 20200805
  15. GRANISETRON [Concomitant]
     Active Substance: GRANISETRON
     Indication: NAUSEA
     Dosage: 1 MILLIGRAM
     Route: 042
     Dates: start: 20190807, end: 20190807
  16. DEXART [Concomitant]
     Active Substance: DEXAMETHASONE SODIUM PHOSPHATE
     Indication: NAUSEA
     Dosage: 6.6 MILLIGRAM
     Route: 042
     Dates: start: 20190731, end: 20190731
  17. DEXART [Concomitant]
     Active Substance: DEXAMETHASONE SODIUM PHOSPHATE
     Dosage: 6.6 MILLIGRAM
     Route: 042
     Dates: start: 20190807, end: 20190807
  18. DEXART [Concomitant]
     Active Substance: DEXAMETHASONE SODIUM PHOSPHATE
     Dosage: 6.6 MILLIGRAM
     Route: 042
     Dates: start: 20191030, end: 20191030
  19. DEXART [Concomitant]
     Active Substance: DEXAMETHASONE SODIUM PHOSPHATE
     Dosage: 6.6 MILLIGRAM
     Route: 042
     Dates: start: 20200803, end: 20200803
  20. VEEN?D [Concomitant]
     Active Substance: DEXTROSE
     Indication: FEBRILE NEUTROPENIA
     Dosage: 500 MILLILITER
     Route: 042
     Dates: start: 20200805, end: 20200805
  21. ABRAXANE [Suspect]
     Active Substance: PACLITAXEL
     Dosage: 148 MILLIGRAM
     Route: 042
     Dates: start: 20190821, end: 20190821
  22. ABRAXANE [Suspect]
     Active Substance: PACLITAXEL
     Dosage: 148 MILLIGRAM
     Route: 042
     Dates: start: 20190925, end: 20190925
  23. ABRAXANE [Suspect]
     Active Substance: PACLITAXEL
     Dosage: 148 MILLIGRAM
     Route: 042
     Dates: start: 20191009, end: 20191009
  24. DURVALUMAB. [Suspect]
     Active Substance: DURVALUMAB
     Dosage: 1500 MILLIGRAM
     Route: 042
     Dates: start: 20190925, end: 20190925
  25. DURVALUMAB. [Suspect]
     Active Substance: DURVALUMAB
     Dosage: 1500 MILLIGRAM
     Route: 042
     Dates: start: 20200512, end: 20200512
  26. BLINDED OLAPARIB [Suspect]
     Active Substance: OLAPARIB
     Dosage: 500 MILLIGRAM
     Route: 048
     Dates: start: 20200417, end: 20200511
  27. BLINDED OLAPARIB [Suspect]
     Active Substance: OLAPARIB
     Dosage: 250 MILLIGRAM
     Route: 048
     Dates: start: 20200512, end: 20200512
  28. URIEF [Concomitant]
     Active Substance: SILODOSIN
     Indication: BENIGN PROSTATIC HYPERPLASIA
     Dosage: 4 MILLIGRAM
     Route: 048
     Dates: start: 20190731, end: 20190731
  29. URIEF [Concomitant]
     Active Substance: SILODOSIN
     Dosage: 8 MILLIGRAM
     Route: 048
     Dates: start: 20190801
  30. OXCODONE [Concomitant]
     Dosage: 5 MILLIGRAM
     Route: 048
     Dates: start: 20200714, end: 20200816
  31. RABEPRAZOLE SODIUM. [Concomitant]
     Active Substance: RABEPRAZOLE SODIUM
     Dosage: 10 MILLIGRAM
     Route: 048
     Dates: start: 20200109, end: 20200130
  32. EVOXAC [Concomitant]
     Active Substance: CEVIMELINE HYDROCHLORIDE
     Indication: DRY MOUTH
     Dosage: 60 MILLIGRAM
     Route: 048
     Dates: start: 20200311, end: 20200417
  33. RESTAMIN [Concomitant]
     Active Substance: DIPHENHYDRAMINE
     Indication: HYPERSENSITIVITY
     Dosage: 50 MILLIGRAM
     Route: 048
     Dates: start: 20200803, end: 20200803
  34. PRIMPERAN [Concomitant]
     Active Substance: METOCLOPRAMIDE HYDROCHLORIDE
     Indication: FEBRILE NEUTROPENIA
     Route: 042
     Dates: start: 20200811, end: 20200812
  35. ABRAXANE [Suspect]
     Active Substance: PACLITAXEL
     Dosage: 148 MILLIGRAM
     Route: 042
     Dates: start: 20190904, end: 20190904
  36. DURVALUMAB. [Suspect]
     Active Substance: DURVALUMAB
     Dosage: 1500 MILLIGRAM
     Route: 042
     Dates: start: 20191127, end: 20191127
  37. DURVALUMAB. [Suspect]
     Active Substance: DURVALUMAB
     Dosage: 1500 MILLIGRAM
     Route: 042
     Dates: start: 20200609, end: 20200609
  38. BLINDED OLAPARIB [Suspect]
     Active Substance: OLAPARIB
     Dosage: 600 MILLIGRAM
     Route: 048
     Dates: start: 20200220, end: 20200317
  39. BLINDED OLAPARIB [Suspect]
     Active Substance: OLAPARIB
     Dosage: 400 MILLIGRAM
     Route: 048
     Dates: start: 20200609, end: 20200706
  40. EVOXAC [Concomitant]
     Active Substance: CEVIMELINE HYDROCHLORIDE
     Dosage: 30 MILLIGRAM
     Route: 048
     Dates: start: 20200708, end: 20200804
  41. EVOXAC [Concomitant]
     Active Substance: CEVIMELINE HYDROCHLORIDE
     Dosage: 60 MILLIGRAM
     Route: 048
     Dates: start: 20200804, end: 20200805
  42. HIRUDOID [Concomitant]
     Active Substance: GLYCOSAMINOGLYCANS
     Indication: PSORIASIS
     Route: 061
     Dates: start: 20200129
  43. DURVALUMAB. [Suspect]
     Active Substance: DURVALUMAB
     Dosage: 1500 MILLIGRAM
     Route: 042
     Dates: start: 20200219, end: 20200219
  44. DURVALUMAB. [Suspect]
     Active Substance: DURVALUMAB
     Dosage: 1500 MILLIGRAM
     Route: 042
     Dates: start: 20200318, end: 20200318
  45. BLINDED OLAPARIB [Suspect]
     Active Substance: OLAPARIB
     Dosage: 200 MILLIGRAM
     Route: 048
     Dates: start: 20200707, end: 20200707
  46. RABEPRAZOLE SODIUM. [Concomitant]
     Active Substance: RABEPRAZOLE SODIUM
     Indication: GASTRITIS
     Dosage: 10 MILLIGRAM
     Route: 048
     Dates: start: 20200109, end: 20200130
  47. HACHIAZULE [Concomitant]
     Route: 065
     Dates: start: 20200418, end: 20200809
  48. NOVAMIN [Concomitant]
     Indication: NAUSEA
     Dosage: 15 MILLIGRAM
     Route: 048
     Dates: start: 20200714
  49. GRANISETRON [Concomitant]
     Active Substance: GRANISETRON
     Dosage: 1 MILLIGRAM
     Route: 042
     Dates: start: 20191009, end: 20191009
  50. DEXART [Concomitant]
     Active Substance: DEXAMETHASONE SODIUM PHOSPHATE
     Dosage: 6.6 MILLIGRAM
     Route: 042
     Dates: start: 20190821, end: 20190821
  51. LOXOPROFEN [Concomitant]
     Active Substance: LOXOPROFEN
     Indication: PYREXIA
     Route: 048
     Dates: start: 20200812, end: 20200816
  52. ABRAXANE [Suspect]
     Active Substance: PACLITAXEL
     Dosage: 148 MILLIGRAM
     Route: 042
     Dates: start: 20191030, end: 20191030
  53. DURVALUMAB. [Suspect]
     Active Substance: DURVALUMAB
     Dosage: 1500 MILLIGRAM
     Route: 042
     Dates: start: 20190821, end: 20190821
  54. RABEPRAZOLE SODIUM. [Concomitant]
     Active Substance: RABEPRAZOLE SODIUM
     Dosage: 10 MILLIGRAM
     Route: 048
     Dates: start: 20200131, end: 20200801
  55. HACHIAZULE [Concomitant]
     Indication: GASTRITIS
     Route: 065
     Dates: start: 20200115, end: 20200417
  56. GRANISETRON [Concomitant]
     Active Substance: GRANISETRON
     Dosage: 1 MILLIGRAM
     Route: 042
     Dates: start: 20190904, end: 20190904
  57. GRANISETRON [Concomitant]
     Active Substance: GRANISETRON
     Dosage: 1 MILLIGRAM
     Route: 042
     Dates: start: 20191002, end: 20191002
  58. DEXART [Concomitant]
     Active Substance: DEXAMETHASONE SODIUM PHOSPHATE
     Dosage: 6.6 MILLIGRAM
     Route: 042
     Dates: start: 20190828, end: 20190828
  59. DEXART [Concomitant]
     Active Substance: DEXAMETHASONE SODIUM PHOSPHATE
     Dosage: 6.6 MILLIGRAM
     Route: 042
     Dates: start: 20190925, end: 20190925
  60. ABRAXANE [Suspect]
     Active Substance: PACLITAXEL
     Dosage: 148 MILLIGRAM
     Route: 042
     Dates: start: 20190828, end: 20190828
  61. CARBOPLATIN. [Suspect]
     Active Substance: CARBOPLATIN
     Dosage: 520 MILLIGRAM
     Route: 042
     Dates: start: 20190821, end: 20190821
  62. BLINDED OLAPARIB [Suspect]
     Active Substance: OLAPARIB
     Dosage: 300 MILLIGRAM
     Route: 048
     Dates: start: 20200219, end: 20200219
  63. OXCODONE [Concomitant]
     Indication: CANCER PAIN
     Dosage: 5 MILLIGRAM
     Route: 048
     Dates: start: 20200713, end: 20200713
  64. GRANISETRON [Concomitant]
     Active Substance: GRANISETRON
     Dosage: 1 MILLIGRAM
     Route: 042
     Dates: start: 20191106, end: 20191106
  65. DEXART [Concomitant]
     Active Substance: DEXAMETHASONE SODIUM PHOSPHATE
     Dosage: 6.6 MILLIGRAM
     Route: 042
     Dates: start: 20191009, end: 20191009
  66. ABRAXANE [Suspect]
     Active Substance: PACLITAXEL
     Indication: NON-SMALL CELL LUNG CANCER STAGE IV
     Dosage: 151 MILLIGRAM
     Route: 042
     Dates: start: 20190731, end: 20190731
  67. CARBOPLATIN. [Suspect]
     Active Substance: CARBOPLATIN
     Dosage: 520 MILLIGRAM
     Route: 042
     Dates: start: 20190925, end: 20190925
  68. CARBOPLATIN. [Suspect]
     Active Substance: CARBOPLATIN
     Dosage: 520 520 MILLIGRAM
     Route: 042
     Dates: start: 20191030, end: 20191030
  69. BLINDED OLAPARIB [Suspect]
     Active Substance: OLAPARIB
     Dosage: 300 MILLIGRAM
     Route: 048
     Dates: start: 20200103, end: 20200103
  70. BLINDED OLAPARIB [Suspect]
     Active Substance: OLAPARIB
     Dosage: 300 MILLIGRAM
     Route: 048
     Dates: start: 20200318, end: 20200318
  71. AVOLVE [Concomitant]
     Active Substance: DUTASTERIDE
     Indication: BENIGN PROSTATIC HYPERPLASIA
     Dosage: .5 MILLIGRAM
     Route: 048
     Dates: start: 2019, end: 20200805
  72. URSODEOXYCHOLIC ACID [Concomitant]
     Active Substance: URSODIOL
     Indication: AST/ALT RATIO ABNORMAL
     Dosage: 200 MILLIGRAM
     Route: 048
     Dates: start: 20200716, end: 20200716
  73. URSODEOXYCHOLIC ACID [Concomitant]
     Active Substance: URSODIOL
     Dosage: 100 MILLIGRAM
     Route: 048
     Dates: start: 20200717, end: 20200722
  74. URSODEOXYCHOLIC ACID [Concomitant]
     Active Substance: URSODIOL
     Route: 048
     Dates: start: 20200811, end: 20200812
  75. GRANISETRON [Concomitant]
     Active Substance: GRANISETRON
     Dosage: 1 MILLIGRAM
     Route: 042
     Dates: start: 20190828, end: 20190828
  76. DEXART [Concomitant]
     Active Substance: DEXAMETHASONE SODIUM PHOSPHATE
     Dosage: 6.6 MILLIGRAM
     Route: 042
     Dates: start: 20191002, end: 20191002
  77. DEXART [Concomitant]
     Active Substance: DEXAMETHASONE SODIUM PHOSPHATE
     Dosage: 6.6 MILLIGRAM
     Route: 042
     Dates: start: 20191106, end: 20191106
  78. METOCLOPRAMIDE. [Concomitant]
     Active Substance: METOCLOPRAMIDE
     Indication: FEBRILE NEUTROPENIA
     Route: 048
     Dates: start: 20200806, end: 20200812
  79. VEEN?D [Concomitant]
     Active Substance: DEXTROSE
     Dosage: 1000 MILLILITER
     Route: 042
     Dates: start: 20200806, end: 20200809
  80. BLINDED OLAPARIB [Suspect]
     Active Substance: OLAPARIB
     Dosage: 400 MILLIGRAM
     Route: 048
     Dates: start: 20200526, end: 20200608
  81. EURAX H [Concomitant]
     Indication: PSORIASIS
     Route: 061
     Dates: start: 20200129
  82. GRANISETRON [Concomitant]
     Active Substance: GRANISETRON
     Dosage: 1 MILLIGRAM
     Route: 042
     Dates: start: 20200803, end: 20200803
  83. DEXART [Concomitant]
     Active Substance: DEXAMETHASONE SODIUM PHOSPHATE
     Dosage: 6.6 MILLIGRAM
     Route: 042
     Dates: start: 20190904, end: 20190904

REACTIONS (1)
  - Type 1 diabetes mellitus [Not Recovered/Not Resolved]

NARRATIVE: CASE EVENT DATE: 20200813
